FAERS Safety Report 7369366-7 (Version None)
Quarter: 2011Q1

REPORT INFORMATION
  Report Type: 
  Country: None (occurrence: None)
  Receive Date: 20110323
  Receipt Date: 20110301
  Transmission Date: 20110831
  Serious: No
  Sender: FDA-Public Use
  Company Number: US-B.I. PHARMACEUTICALS,INC./RIDGEFIELD-2011-BP-05898BP

PATIENT
  Age: 85 Year
  Sex: Female

DRUGS (7)
  1. PREMARIN [Concomitant]
     Indication: HORMONE THERAPY
     Dosage: 1.25 MG
     Route: 048
     Dates: start: 19900101
  2. POTASSIUM CHLORIDE [Concomitant]
     Indication: FLUID RETENTION
     Dosage: 10 MEQ
     Route: 048
     Dates: start: 20100101
  3. ASPIRIN [Concomitant]
     Indication: CARDIAC DISORDER
     Dosage: 81 MG
     Route: 048
     Dates: start: 20060101
  4. CARDIZEM [Concomitant]
     Indication: HYPERTENSION
     Dosage: 120 MG
     Route: 048
     Dates: start: 20100101
  5. LASIX [Concomitant]
     Indication: FLUID RETENTION
     Dosage: 20 MG
     Route: 048
     Dates: start: 20100101
  6. PRADAXA [Suspect]
     Indication: ATRIAL FIBRILLATION
     Dosage: 300 MG
     Route: 048
     Dates: start: 20110101
  7. PLAVIX [Concomitant]
     Indication: POOR PERIPHERAL CIRCULATION
     Dosage: 75 MG
     Route: 048
     Dates: start: 20060101

REACTIONS (2)
  - CONTUSION [None]
  - OEDEMA PERIPHERAL [None]
